FAERS Safety Report 4375784-1 (Version None)
Quarter: 2004Q2

REPORT INFORMATION
  Report Type: 
  Country: None (occurrence: None)
  Receive Date: 20040609
  Receipt Date: 20040609
  Transmission Date: 20050107
  Serious: Yes (Hospitalization)
  Sender: FDA-Public Use
  Company Number: None

PATIENT
  Age: 66 Year
  Sex: Male

DRUGS (13)
  1. CYTARABINE [Suspect]
     Indication: ACUTE MYELOID LEUKAEMIA
     Dosage: 3480 MG IV BID
     Route: 042
  2. DEXAMETHASONE [Concomitant]
  3. ONDANSETRON [Concomitant]
  4. LORAZEPAM [Concomitant]
  5. METOPROLOL TARTRATE [Concomitant]
  6. TERAZOSIN HCL [Concomitant]
  7. SSI [Concomitant]
  8. ALLOPURINOL [Concomitant]
  9. TEMAZEPAM [Concomitant]
  10. PROCHLORPERAZINE [Concomitant]
  11. ENALAPRIL [Concomitant]
  12. DOCUSATE [Concomitant]
  13. SENNA [Concomitant]

REACTIONS (10)
  - BALANCE DISORDER [None]
  - BLOOD PRESSURE INCREASED [None]
  - BODY TEMPERATURE INCREASED [None]
  - COORDINATION ABNORMAL [None]
  - DIFFICULTY IN WALKING [None]
  - GAIT DISTURBANCE [None]
  - HEART RATE INCREASED [None]
  - MIOSIS [None]
  - NAUSEA [None]
  - NEUROTOXICITY [None]
